FAERS Safety Report 9401037 (Version 1)
Quarter: 2013Q3

REPORT INFORMATION
  Report Type: Spontaneous
  Country: GB (occurrence: GB)
  Receive Date: 20130715
  Receipt Date: 20130715
  Transmission Date: 20140515
  Serious: Yes (Other)
  Sender: FDA-Public Use
  Company Number: GB-TEVA-416837ISR

PATIENT
  Age: 78 Year
  Sex: Male
  Weight: 76.2 kg

DRUGS (21)
  1. AMOXICILLIN [Suspect]
     Dates: start: 20130520
  2. ALENDRONIC ACID [Concomitant]
     Dates: start: 20130301
  3. CALCICHEW D3 [Concomitant]
     Dates: start: 20130301
  4. CITALOPRAM [Concomitant]
     Dates: start: 20130301
  5. FINASTERIDE [Concomitant]
     Dates: start: 20130301
  6. FUROSEMIDE [Concomitant]
     Dates: start: 20130301
  7. LOSARTAN [Concomitant]
     Dates: start: 20130301
  8. SERETIDE [Concomitant]
     Dates: start: 20130301
  9. SIMVASTATIN [Concomitant]
     Dates: start: 20130301
  10. TIOTROPIUM [Concomitant]
     Dates: start: 20130301
  11. VENTOLIN [Concomitant]
     Dates: start: 20130301
  12. ZOMORPH [Concomitant]
     Dates: start: 20130301
  13. ZOPICLONE [Concomitant]
     Dates: start: 20130301
  14. SALBUTAMOL [Concomitant]
     Dates: start: 20130314
  15. DOXYCYCLINE [Concomitant]
     Dates: start: 20130321, end: 20130419
  16. PREDNISOLONE [Concomitant]
     Dates: start: 20130321
  17. BECLOMETASONE [Concomitant]
     Dates: start: 20130322, end: 20130419
  18. CARBOCISTEINE [Concomitant]
     Dates: start: 20130322
  19. PARACETAMOL [Concomitant]
     Dates: start: 20130322, end: 20130607
  20. OMEPRAZOLE [Concomitant]
     Dates: start: 20130412
  21. DOXAZOSIN [Concomitant]
     Dates: start: 20130430

REACTIONS (1)
  - Hallucination [Recovered/Resolved]
